FAERS Safety Report 7217713-9 (Version None)
Quarter: 2011Q1

REPORT INFORMATION
  Report Type: 
  Country: None (occurrence: None)
  Receive Date: 20110110
  Receipt Date: 20110105
  Transmission Date: 20110831
  Serious: Yes (Other)
  Sender: FDA-Public Use
  Company Number: US-AMGEN-USASP2011000764

PATIENT

DRUGS (1)
  1. ENBREL [Suspect]
     Indication: RHEUMATOID ARTHRITIS
     Dates: start: 20100429

REACTIONS (7)
  - ERYTHEMA [None]
  - EYE DISORDER [None]
  - PHOTOPHOBIA [None]
  - ABNORMAL SENSATION IN EYE [None]
  - OCULAR HYPERAEMIA [None]
  - EYE SWELLING [None]
  - VISION BLURRED [None]
